FAERS Safety Report 6066688-7 (Version None)
Quarter: 2009Q1

REPORT INFORMATION
  Report Type: 
  Country: None (occurrence: None)
  Receive Date: 20090205
  Receipt Date: 20080213
  Transmission Date: 20090719
  Serious: No
  Sender: FDA-Public Use
  Company Number: US-ABBOTT-08P-163-0438716-00

PATIENT
  Age: 73 Year
  Sex: Female
  Weight: 77.18 kg

DRUGS (4)
  1. VICODIN [Suspect]
     Indication: PAIN
     Dates: start: 20030101
  2. ACETAMINOPHEN [Suspect]
     Indication: PAIN
  3. ACETAMINOPHEN [Suspect]
  4. HORMONES NOS [Concomitant]
     Indication: DRUG USE FOR UNKNOWN INDICATION

REACTIONS (2)
  - DRUG ADMINISTRATION ERROR [None]
  - EXPRESSIVE LANGUAGE DISORDER [None]
